FAERS Safety Report 4539456-2 (Version None)
Quarter: 2004Q4

REPORT INFORMATION
  Report Type: 
  Country: None (occurrence: None)
  Receive Date: 20041222
  Receipt Date: 20041209
  Transmission Date: 20050328
  Serious: Yes (Life-Threatening)
  Sender: FDA-Public Use
  Company Number: 2004AP05871

PATIENT
  Age: 36 Year
  Sex: Female

DRUGS (9)
  1. IRESSA [Suspect]
     Indication: ADENOCARCINOMA OF THE CERVIX
     Dosage: 250 MG DAILY PO
     Route: 048
     Dates: start: 20040906, end: 20041115
  2. DAI-KENCHU-TO [Concomitant]
  3. JUZEN-TAIHO-TO [Concomitant]
  4. TAXOL [Concomitant]
  5. UFT [Concomitant]
  6. PARAPLATIN [Concomitant]
  7. EPOGIN [Concomitant]
  8. FESIN [Concomitant]
  9. PICIBANIL [Concomitant]

REACTIONS (3)
  - ANAEMIA [None]
  - HEPATIC FUNCTION ABNORMAL [None]
  - THROMBOCYTOPENIA [None]
